FAERS Safety Report 19813584 (Version 4)
Quarter: 2022Q1

REPORT INFORMATION
  Report Type: Spontaneous
  Country: FR (occurrence: FR)
  Receive Date: 20210909
  Receipt Date: 20220119
  Transmission Date: 20220423
  Serious: Yes (Death, Other)
  Sender: FDA-Public Use
  Company Number: FR-TEVA-2021-FR-1894810

PATIENT
  Age: 61 Year
  Sex: Male
  Weight: 111 kg

DRUGS (5)
  1. TELMISARTAN [Interacting]
     Active Substance: TELMISARTAN
     Indication: Hypertension
     Dosage: 1 DOSAGE FORM
     Route: 048
     Dates: start: 20190503
  2. TELMISARTAN [Interacting]
     Active Substance: TELMISARTAN
     Dosage: UNK
  3. TRAMADOL [Interacting]
     Active Substance: TRAMADOL
     Indication: Muscle rupture
     Dosage: 1, Q6H, TOOK ONLY 3 DF OF TRAMADOL TEVA IN TOTAL
     Route: 048
     Dates: start: 20210120
  4. TRAMADOL [Interacting]
     Active Substance: TRAMADOL
     Indication: Arthralgia
  5. DAFALGAN [Suspect]
     Active Substance: ACETAMINOPHEN
     Indication: Muscle rupture
     Dosage: 10000 MILLIGRAM
     Route: 065

REACTIONS (27)
  - Coordination abnormal [Fatal]
  - Drug interaction [Fatal]
  - Hypoaesthesia [Fatal]
  - Hyperhidrosis [Fatal]
  - Somnolence [Fatal]
  - Delirium [Fatal]
  - Arthralgia [Fatal]
  - Diarrhoea [Fatal]
  - Dry mouth [Fatal]
  - Fall [Fatal]
  - Abdominal distension [Fatal]
  - Dizziness [Fatal]
  - Confusional state [Fatal]
  - Cardiac arrest [Fatal]
  - Decreased appetite [Fatal]
  - Tremor [Fatal]
  - Hallucination [Fatal]
  - Balance disorder [Fatal]
  - Thirst [Fatal]
  - Disorganised speech [Fatal]
  - General physical health deterioration [Fatal]
  - Pulmonary embolism [Fatal]
  - Heart rate decreased [Fatal]
  - Cognitive disorder [Unknown]
  - Loss of personal independence in daily activities [Unknown]
  - Dysstasia [Unknown]
  - Movement disorder [Unknown]

NARRATIVE: CASE EVENT DATE: 20210121
